FAERS Safety Report 10153510 (Version 1)
Quarter: 2014Q2

REPORT INFORMATION
  Report Type: Spontaneous
  Country: GB (occurrence: GB)
  Receive Date: 20140505
  Receipt Date: 20140505
  Transmission Date: 20141212
  Serious: Yes (Other)
  Sender: FDA-Public Use
  Company Number: GB-WATSON-2014-08825

PATIENT
  Age: 62 Year
  Sex: Male
  Weight: 85 kg

DRUGS (11)
  1. FENTANYL (UNKNOWN) [Suspect]
     Indication: PRODUCT USED FOR UNKNOWN INDICATION
     Dosage: 200 ?G ONCE EVERY 48 HOURS; 200 MCG/HOUR PATCH
     Route: 065
     Dates: start: 2003
  2. ACTIQ [Suspect]
     Indication: PRODUCT USED FOR UNKNOWN INDICATION
     Dosage: 600 MG, PRN; 4 TO 5 LOZENGES PER DAY
     Route: 065
  3. ACTIQ [Suspect]
     Dosage: 800 ?G, PRN;ADVISED NOT TO FINISH THE LOZENGE (PROBLEMS TRYING TO GET 600MCG FROM LOCAL CHEMIST)
     Route: 065
  4. ACTIQ [Suspect]
     Dosage: 400 ?G, PRN
     Route: 065
     Dates: start: 2014
  5. ACTIQ [Suspect]
     Dosage: 200 ?G, PRN
     Route: 065
     Dates: start: 200509
  6. LACTULOSE [Concomitant]
     Indication: PRODUCT USED FOR UNKNOWN INDICATION
     Dosage: 10 ML, TID;30 ML DAILY
     Route: 065
  7. LEVITRA [Concomitant]
     Indication: PRODUCT USED FOR UNKNOWN INDICATION
     Dosage: 20 MG, PRN
     Route: 065
  8. OMEPRAZOLE [Concomitant]
     Indication: PRODUCT USED FOR UNKNOWN INDICATION
     Dosage: 20 MG, DAILY
     Route: 065
  9. SEVREDOL [Concomitant]
     Indication: PRODUCT USED FOR UNKNOWN INDICATION
     Dosage: 100 MG, PRN
     Route: 065
  10. TESTOSTERONE [Concomitant]
     Indication: PRODUCT USED FOR UNKNOWN INDICATION
     Dosage: 250 MG, 1/ THREE WEEKS
     Route: 030
  11. ZOLPIDEM [Concomitant]
     Indication: PRODUCT USED FOR UNKNOWN INDICATION
     Dosage: 10 MG, UNKNOWN
     Route: 065

REACTIONS (8)
  - Dependence [Not Recovered/Not Resolved]
  - Agitation [Not Recovered/Not Resolved]
  - Hyperhidrosis [Not Recovered/Not Resolved]
  - Tremor [Not Recovered/Not Resolved]
  - Tension [Not Recovered/Not Resolved]
  - Drug withdrawal syndrome [Not Recovered/Not Resolved]
  - Drug dispensing error [Unknown]
  - Incorrect dose administered [Unknown]
